FAERS Safety Report 4840471-X (Version None)
Quarter: 2005Q4

REPORT INFORMATION
  Report Type: 
  Country: None (occurrence: None)
  Receive Date: 20051130
  Receipt Date: 20050603
  Transmission Date: 20060501
  Serious: No
  Sender: FDA-Public Use
  Company Number: US-BRISTOL-MYERS SQUIBB COMPANY-12994075

PATIENT
  Age: 50 Year
  Sex: Male

DRUGS (5)
  1. ERBITUX [Suspect]
     Indication: COLON CANCER
     Route: 042
     Dates: start: 20050603, end: 20050603
  2. BENADRYL [Concomitant]
     Dosage: ADMINISTERED OVER 30 MINUTES THEN WAIT 30 MINUTES PRIOR TO CETUXIMAB.
     Dates: start: 20050603, end: 20050603
  3. DECADRON [Concomitant]
  4. IRINOTECAN HCL [Concomitant]
     Dosage: NOT ADMINISTERED ON 03-JUN-2005.
  5. ZOFRAN [Concomitant]

REACTIONS (3)
  - INCORRECT DRUG ADMINISTRATION RATE [None]
  - MEDICATION ERROR [None]
  - NO ADVERSE EFFECT [None]
